FAERS Safety Report 23466143 (Version 1)
Quarter: 2024Q1

REPORT INFORMATION
  Report Type: Report from Study
  Country: CA (occurrence: CA)
  Receive Date: 20240201
  Receipt Date: 20240201
  Transmission Date: 20240409
  Serious: Yes (Hospitalization, Other)
  Sender: FDA-Public Use
  Company Number: CA-JNJFOC-20230119098

PATIENT
  Age: 62 Year
  Sex: Male

DRUGS (5)
  1. SIMPONI [Suspect]
     Active Substance: GOLIMUMAB
     Indication: Ankylosing spondylitis
     Route: 058
     Dates: start: 20160905
  2. SIMPONI [Suspect]
     Active Substance: GOLIMUMAB
     Indication: Pulmonary fibrosis
  3. SIMPONI [Suspect]
     Active Substance: GOLIMUMAB
     Indication: Psoriasis
  4. METHOTREXATE [Concomitant]
     Active Substance: METHOTREXATE
  5. HYDROXYCHLOROQUINE DIPHOSPHATE [Concomitant]
     Active Substance: HYDROXYCHLOROQUINE DIPHOSPHATE

REACTIONS (4)
  - Pulmonary fibrosis [Recovering/Resolving]
  - Spinal operation [Unknown]
  - Illness [Unknown]
  - COVID-19 [Recovered/Resolved]

NARRATIVE: CASE EVENT DATE: 20220101
